FAERS Safety Report 16719120 (Version 2)
Quarter: 2019Q3

REPORT INFORMATION
  Report Type: Report from Study
  Country: US (occurrence: US)
  Receive Date: 20190820
  Receipt Date: 20190924
  Transmission Date: 20191005
  Serious: Yes (Other)
  Sender: FDA-Public Use
  Company Number: US-ROCHE-2377206

PATIENT
  Age: 14 Year
  Sex: Male
  Weight: 37.19 kg

DRUGS (11)
  1. ONDANSETRON [Concomitant]
     Active Substance: ONDANSETRON
     Dosage: 1 TAB 6-8 HRS BY ORAL ROUT AS NEEDED FOR 3 DAYS
     Route: 048
  2. NUTROPIN [Suspect]
     Active Substance: SOMATROPIN
     Indication: BODY HEIGHT BELOW NORMAL
     Route: 058
     Dates: start: 20190812
  3. LEVODOPA [Concomitant]
     Active Substance: LEVODOPA
     Dosage: 2 TABLETS(500MG LEVODOPA) X 1 DOSE PRIOR TO R-GENE 10 INFUSION
     Route: 048
  4. FLUTICASONE PROPIONATE. [Concomitant]
     Active Substance: FLUTICASONE PROPIONATE
     Dosage: SPRAY 2 SPRAYS EVERY DAY BY INTRANASAL ROUTE AS DIRACTED FOR 14 DAYS
     Route: 045
  5. ONDANSETRON HYDROCHLORIDE. [Concomitant]
     Active Substance: ONDANSETRON HYDROCHLORIDE
     Dosage: 2 MG/ML INTRAVENOUS SOLUTION,  INJECT 4 MG INTRAVENOUS ROUTE
     Route: 042
  6. SERTRALINE [Concomitant]
     Active Substance: SERTRALINE HYDROCHLORIDE
     Route: 065
  7. TAMIFLU [Suspect]
     Active Substance: OSELTAMIVIR PHOSPHATE
     Indication: PRODUCT USED FOR UNKNOWN INDICATION
     Dosage: 1 CAPSULE BID FOR 5 DAYS
     Route: 048
     Dates: start: 20190120
  8. TAMIFLU [Suspect]
     Active Substance: OSELTAMIVIR PHOSPHATE
     Route: 048
     Dates: start: 20180217, end: 20180812
  9. ZYRTEC [Concomitant]
     Active Substance: CETIRIZINE HYDROCHLORIDE
     Route: 065
  10. CARBIDOPA. [Concomitant]
     Active Substance: CARBIDOPA
     Route: 065
  11. SERTRALINE [Concomitant]
     Active Substance: SERTRALINE HYDROCHLORIDE
     Route: 065

REACTIONS (2)
  - Nausea [Unknown]
  - Hand fracture [Unknown]

NARRATIVE: CASE EVENT DATE: 20190620
